FAERS Safety Report 8269748-5 (Version None)
Quarter: 2012Q2

REPORT INFORMATION
  Report Type: 
  Country: None (occurrence: None)
  Receive Date: 20120405
  Receipt Date: 20120326
  Transmission Date: 20120825
  Serious: Yes (Other)
  Sender: FDA-Public Use
  Company Number: 2012S1000358

PATIENT
  Sex: Female

DRUGS (1)
  1. LIVALO [Suspect]
     Dosage: PO
     Route: 048

REACTIONS (2)
  - RHABDOMYOLYSIS [None]
  - DRUG INTOLERANCE [None]
